FAERS Safety Report 7892500-7 (Version None)
Quarter: 2011Q4

REPORT INFORMATION
  Report Type: 
  Country: None (occurrence: None)
  Receive Date: 20111027
  Receipt Date: 20111020
  Transmission Date: 20120403
  Serious: Yes (Death, Life-Threatening, Hospitalization, Other)
  Sender: FDA-Public Use
  Company Number: THYM-1001046

PATIENT
  Age: 70 Year
  Sex: Female
  Weight: 65.4 kg

DRUGS (14)
  1. CYCLOSPORINE [Concomitant]
  2. THYMOGLOBULIN [Suspect]
     Indication: APLASTIC ANAEMIA
     Dosage: 244.5 MG, QD, INTRAVENOUS
     Route: 042
     Dates: start: 20090415, end: 20090420
  3. CO-DYDRAMOL (DIHYDROCODE BITARTRATE, PARACETAMOL) [Concomitant]
  4. VANCOMYCIN [Concomitant]
  5. CHLORPHENIRAMINE MALEATE [Concomitant]
  6. DOSULEPIN (DOSULEPIN) [Concomitant]
  7. ACETAMINOPHEN [Concomitant]
  8. CODEINE SULFATE [Concomitant]
  9. MEROPENEM [Concomitant]
  10. ITRACONAZOLE [Concomitant]
  11. METHYLPREDNISOLONE [Concomitant]
  12. HYDROCORTONE [Concomitant]
  13. OMEPRAZOLE [Concomitant]
  14. PREDNISONE [Concomitant]

REACTIONS (6)
  - RESPIRATORY DISTRESS [None]
  - NEUTROPENIC SEPSIS [None]
  - HAEMORRHAGE INTRACRANIAL [None]
  - RENAL FAILURE ACUTE [None]
  - INTERVERTEBRAL DISCITIS [None]
  - KLEBSIELLA TEST POSITIVE [None]
